FAERS Safety Report 8030048-X (Version None)
Quarter: 2011Q4

REPORT INFORMATION
  Report Type: 
  Country: None (occurrence: None)
  Receive Date: 20111130
  Receipt Date: 20110801
  Transmission Date: 20120403
  Serious: Yes (Other)
  Sender: FDA-Public Use
  Company Number: US201107001967

PATIENT
  Age: 53 Year
  Sex: Female
  Weight: 136.1 kg

DRUGS (10)
  1. METFORMIN HCL [Concomitant]
  2. GLYBURIDE [Concomitant]
  3. GABAPENTIN [Concomitant]
  4. NOVOLOG [Concomitant]
  5. ULTRAM [Concomitant]
  6. ASPIRIN [Concomitant]
  7. LISINOPIRL (LISINOPIRL ) [Concomitant]
  8. ACE INHIBITORS [Concomitant]
  9. BYETTA [Suspect]
     Indication: TYPE 2 DIABETES MELLITUS
     Dosage: 5 UG, BID, SUBCUTANEOUS, 10 UG, BID, SUBCUTANEOUS
     Route: 058
     Dates: start: 20110214, end: 20110421
  10. BYETTA [Suspect]
     Indication: TYPE 2 DIABETES MELLITUS
     Dosage: 5 UG, BID, SUBCUTANEOUS, 10 UG, BID, SUBCUTANEOUS
     Route: 058
     Dates: start: 20110131, end: 20110213

REACTIONS (3)
  - OFF LABEL USE [None]
  - WEIGHT DECREASED [None]
  - PANCREATITIS [None]
